FAERS Safety Report 25105500 (Version 2)
Quarter: 2025Q1

REPORT INFORMATION
  Report Type: Spontaneous
  Country: US (occurrence: US)
  Receive Date: 20250321
  Receipt Date: 20250321
  Transmission Date: 20250408
  Serious: No
  Sender: PFIZER
  Company Number: US-PFIZER INC-PV202300102577

PATIENT
  Age: 65 Year
  Sex: Male
  Weight: 95.25 kg

DRUGS (5)
  1. XALKORI [Suspect]
     Active Substance: CRIZOTINIB
     Indication: Non-small cell lung cancer
  2. XALKORI [Suspect]
     Active Substance: CRIZOTINIB
     Dosage: 200 MG, 2X/DAY(200MG A DAY X 2 A DAY)
  3. XALKORI [Suspect]
     Active Substance: CRIZOTINIB
     Dosage: 200 MG, 1X/DAY (200MG A DAY X 2 A DAY)
  4. XALKORI [Suspect]
     Active Substance: CRIZOTINIB
     Dosage: 20 MG, 2X/DAY
     Dates: start: 202306
  5. KEYTRUDA [Suspect]
     Active Substance: PEMBROLIZUMAB

REACTIONS (8)
  - Intentional product misuse [Unknown]
  - Diarrhoea [Unknown]
  - Vision blurred [Unknown]
  - Skin tightness [Unknown]
  - Skin warm [Unknown]
  - Abdominal distension [Unknown]
  - Muscle spasms [Unknown]
  - Peripheral swelling [Unknown]

NARRATIVE: CASE EVENT DATE: 20231001
